FAERS Safety Report 5030386-9 (Version None)
Quarter: 2006Q2

REPORT INFORMATION
  Report Type: 
  Country: None (occurrence: None)
  Receive Date: 20060614
  Receipt Date: 20060525
  Transmission Date: 20061013
  Serious: Yes (Death)
  Sender: FDA-Public Use
  Company Number: WAES 0605GBR00149

PATIENT

DRUGS (6)
  1. DECADRON [Suspect]
     Indication: AMYLOIDOSIS
     Route: 048
     Dates: start: 19960801, end: 20011201
  2. DECADRON [Suspect]
     Indication: CHEMOTHERAPY
     Route: 048
     Dates: start: 19960801, end: 20011201
  3. IDARUBICIN HCL [Suspect]
     Indication: AMYLOIDOSIS
     Dates: start: 19960801, end: 20011201
  4. IDARUBICIN HCL [Suspect]
     Indication: CHEMOTHERAPY
     Dates: start: 19960801, end: 20011201
  5. MELPHALAN [Suspect]
     Indication: AMYLOIDOSIS
     Dates: start: 19960801, end: 20011201
  6. MELPHALAN [Suspect]
     Indication: CHEMOTHERAPY
     Dates: start: 19960801, end: 20011201

REACTIONS (1)
  - PNEUMONIA [None]
